FAERS Safety Report 14855467 (Version 1)
Quarter: 2018Q2

REPORT INFORMATION
  Report Type: Spontaneous
  Country: US (occurrence: US)
  Receive Date: 20180507
  Receipt Date: 20180507
  Transmission Date: 20180711
  Serious: No
  Sender: FDA-Public Use
  Company Number: US-ROCHE-1980310

PATIENT
  Sex: Male

DRUGS (9)
  1. LOSARTAN POTASSIUM. [Concomitant]
     Active Substance: LOSARTAN POTASSIUM
  2. TAMSULOSIN [Concomitant]
     Active Substance: TAMSULOSIN
  3. CELEBREX [Concomitant]
     Active Substance: CELECOXIB
  4. ESBRIET [Suspect]
     Active Substance: PIRFENIDONE
     Indication: PRODUCT USED FOR UNKNOWN INDICATION
     Route: 048
     Dates: start: 20170529
  5. COENZYME Q10 [Concomitant]
     Active Substance: UBIDECARENONE
  6. RANITIDINE. [Concomitant]
     Active Substance: RANITIDINE
  7. METOPROLOL. [Concomitant]
     Active Substance: METOPROLOL
  8. ATORVASTATIN CALCIUM. [Concomitant]
     Active Substance: ATORVASTATIN CALCIUM
  9. MORPHINE SULFATE. [Concomitant]
     Active Substance: MORPHINE SULFATE
     Route: 065

REACTIONS (1)
  - Dyspnoea [Unknown]
